FAERS Safety Report 5264462-2 (Version None)
Quarter: 2007Q1

REPORT INFORMATION
  Report Type: 
  Country: None (occurrence: None)
  Receive Date: 20070309
  Receipt Date: 20070228
  Transmission Date: 20070707
  Serious: Yes (Hospitalization)
  Sender: FDA-Public Use
  Company Number: 237158K06USA

PATIENT
  Age: 58 Year
  Sex: Female
  Weight: 99.7913 kg

DRUGS (14)
  1. REBIF [Suspect]
     Indication: MULTIPLE SCLEROSIS
     Dosage: 44 MCG, 3 IN 1 WEEKS, SUBCUTANEOUS
     Route: 058
     Dates: start: 20050318
  2. ALEVE [Concomitant]
  3. MOBIC [Concomitant]
  4. PREVACID [Concomitant]
  5. EVISTA [Concomitant]
  6. SULFAMETHOXAZOLE DS (SULFAMETHOXAZOLE) [Concomitant]
  7. CLORAZEPATE DIPOTASSIUM [Concomitant]
  8. REQUIP [Concomitant]
  9. TRAMADOL (TRAMADOL /00599201/) [Concomitant]
  10. FUROSEMIDE (FUROSEMIDE /00032601/) [Concomitant]
  11. KLOR-CON [Concomitant]
  12. CELEXA [Concomitant]
  13. CYMBALTA [Concomitant]
  14. PROVIGIL [Concomitant]

REACTIONS (2)
  - FATIGUE [None]
  - PEPTIC ULCER [None]
